FAERS Safety Report 24883048 (Version 6)
Quarter: 2025Q4

REPORT INFORMATION
  Report Type: Report from Study
  Country: US (occurrence: US)
  Receive Date: 20250124
  Receipt Date: 20251209
  Transmission Date: 20260118
  Serious: Yes (Hospitalization, Other)
  Sender: NOVARTIS
  Company Number: US-002147023-NVSC2025US012457

PATIENT
  Sex: Female

DRUGS (1)
  1. KESIMPTA [Suspect]
     Active Substance: OFATUMUMAB
     Indication: Multiple sclerosis
     Dosage: 20 MG, QMO
     Route: 058
     Dates: start: 20250715

REACTIONS (5)
  - Blindness unilateral [Unknown]
  - Pain [Recovering/Resolving]
  - Foot fracture [Recovering/Resolving]
  - Fall [Recovering/Resolving]
  - Visual impairment [Recovering/Resolving]
